FAERS Safety Report 7955354-6 (Version None)
Quarter: 2011Q4

REPORT INFORMATION
  Report Type: 
  Country: None (occurrence: None)
  Receive Date: 20111202
  Receipt Date: 20111125
  Transmission Date: 20120403
  Serious: Yes (Disabling)
  Sender: FDA-Public Use
  Company Number: FR-UCBSA-046521

PATIENT
  Age: 72 Year
  Sex: Female

DRUGS (4)
  1. DEXAFREE [Suspect]
     Indication: MACULAR OEDEMA
     Dosage: COLLYRIUM
     Route: 031
     Dates: start: 20110301, end: 20110927
  2. NEUPRO [Suspect]
     Indication: PARKINSON'S DISEASE
     Dosage: DAILY DOSE:1 PATCH.
     Route: 062
     Dates: start: 20110810, end: 20110927
  3. ESCITALOPRAM OXALATE [Suspect]
     Dosage: DAILY DOSE:1 UNIT
     Route: 048
     Dates: start: 20110201, end: 20111105
  4. TAMOXIFEN CITRATE [Concomitant]
     Indication: BREAST CANCER

REACTIONS (1)
  - KERATITIS [None]
